FAERS Safety Report 14232769 (Version 1)
Quarter: 2017Q4

REPORT INFORMATION
  Report Type: Spontaneous
  Country: US (occurrence: None)
  Receive Date: 20171128
  Receipt Date: 20171128
  Transmission Date: 20180321
  Serious: Yes (Hospitalization)
  Sender: FDA-Public Use
  Company Number: None

PATIENT
  Age: 51 Year
  Sex: Male
  Weight: 82.92 kg

DRUGS (1)
  1. PREDNISONE. [Suspect]
     Active Substance: PREDNISONE
     Indication: HEPATITIS ALCOHOLIC
     Route: 048
     Dates: start: 20170430, end: 20170512

REACTIONS (1)
  - Hyperglycaemia [None]

NARRATIVE: CASE EVENT DATE: 20170512
